FAERS Safety Report 10687416 (Version 2)
Quarter: 2015Q1

REPORT INFORMATION
  Report Type: Spontaneous
  Country: GB (occurrence: GB)
  Receive Date: 20150102
  Receipt Date: 20150102
  Transmission Date: 20150720
  Serious: Yes (Other)
  Sender: FDA-Public Use
  Company Number: PHFR2014GB008464

PATIENT
  Age: 84 Year
  Sex: Male

DRUGS (8)
  1. TEGRETOL [Suspect]
     Active Substance: CARBAMAZEPINE
     Dosage: 1 DF, QD (PATIENT TOOK FIRST TABLET FOR THE DAY)
     Route: 048
     Dates: start: 20141203
  2. SPIRONOLACTONE. [Concomitant]
     Active Substance: SPIRONOLACTONE
     Indication: PRODUCT USED FOR UNKNOWN INDICATION
     Route: 065
  3. TEGRETOL [Suspect]
     Active Substance: CARBAMAZEPINE
     Indication: HEADACHE
     Dosage: 100 MG, BID
     Route: 048
     Dates: start: 20141125
  4. DIGOXIN. [Concomitant]
     Active Substance: DIGOXIN
     Indication: PRODUCT USED FOR UNKNOWN INDICATION
     Route: 065
  5. TEGRETOL [Suspect]
     Active Substance: CARBAMAZEPINE
     Dosage: 3 DF, QD
     Route: 048
     Dates: start: 20141202
  6. COTRIMOXAZOLE [Concomitant]
     Active Substance: SULFAMETHOXAZOLE\TRIMETHOPRIM
     Indication: PRODUCT USED FOR UNKNOWN INDICATION
     Route: 065
  7. TEGRETOL [Suspect]
     Active Substance: CARBAMAZEPINE
     Indication: POOR QUALITY SLEEP
     Dosage: 1 DF, QD
     Route: 048
     Dates: start: 20141126
  8. TEGRETOL [Suspect]
     Active Substance: CARBAMAZEPINE
     Dosage: 2 DF, QD
     Route: 048
     Dates: start: 20141128

REACTIONS (4)
  - Drug ineffective [Unknown]
  - Blindness [Not Recovered/Not Resolved]
  - Vision blurred [Not Recovered/Not Resolved]
  - Diplopia [Not Recovered/Not Resolved]

NARRATIVE: CASE EVENT DATE: 20141203
